FAERS Safety Report 9674689 (Version 1)
Quarter: 2013Q4

REPORT INFORMATION
  Report Type: Spontaneous
  Country: US (occurrence: US)
  Receive Date: 20131107
  Receipt Date: 20131107
  Transmission Date: 20140711
  Serious: No
  Sender: FDA-Public Use
  Company Number: US-ENDO PHARMACEUTICALS INC.-AMLO20130002

PATIENT
  Age: 64 Year
  Sex: Male

DRUGS (2)
  1. AMLODIPINE BESYLATE TABLETS 10MG [Suspect]
     Indication: HYPERTENSION
     Dosage: 10 MG
     Route: 048
  2. LISINOPRIL TABLETS 40MG [Suspect]
     Indication: HYPERTENSION
     Dosage: 40 MG
     Route: 048

REACTIONS (1)
  - Pruritus [Not Recovered/Not Resolved]
